FAERS Safety Report 4675526-6 (Version None)
Quarter: 2005Q2

REPORT INFORMATION
  Report Type: 
  Country: None (occurrence: None)
  Receive Date: 20050527
  Receipt Date: 20050405
  Transmission Date: 20051028
  Serious: No
  Sender: FDA-Public Use
  Company Number: US-BRISTOL-MYERS SQUIBB COMPANY-12921797

PATIENT
  Sex: Female

DRUGS (4)
  1. ABILIFY [Suspect]
     Indication: BIPOLAR DISORDER
     Dates: start: 20030411, end: 20050330
  2. ABILIFY [Suspect]
     Indication: ANXIETY DISORDER
     Dates: start: 20030411, end: 20050330
  3. WELLBUTRIN [Concomitant]
  4. PROVIGIL [Concomitant]

REACTIONS (2)
  - ALOPECIA [None]
  - PRESCRIBED OVERDOSE [None]
